FAERS Safety Report 7008421-8 (Version None)
Quarter: 2010Q3

REPORT INFORMATION
  Report Type: 
  Country: None (occurrence: None)
  Receive Date: 20100922
  Receipt Date: 20100913
  Transmission Date: 20110219
  Serious: Yes (Other)
  Sender: FDA-Public Use
  Company Number: US-ABBOTT-10P-163-0671478-00

PATIENT
  Sex: Male
  Weight: 78.996 kg

DRUGS (16)
  1. NIASPAN [Suspect]
     Indication: BLOOD CHOLESTEROL INCREASED
     Route: 048
     Dates: start: 20100101, end: 20100201
  2. NIASPAN [Suspect]
     Indication: BLOOD TRIGLYCERIDES INCREASED
     Route: 048
     Dates: start: 20100830
  3. ASPIRIN [Concomitant]
     Indication: FLUSHING
     Route: 048
     Dates: start: 20100830
  4. ASPIRIN [Concomitant]
     Indication: PROPHYLAXIS
  5. METFORMIN [Concomitant]
     Indication: DIABETES MELLITUS
     Route: 048
  6. GLIPIZIDE [Concomitant]
     Indication: DIABETES MELLITUS
     Route: 048
  7. LANTUS [Concomitant]
     Indication: DIABETES MELLITUS
     Route: 058
     Dates: start: 20100910
  8. LANTUS [Concomitant]
     Dosage: HS
     Route: 058
  9. PANCREASE [Concomitant]
     Indication: PANCREATITIS
     Route: 048
  10. PLAVIX [Concomitant]
     Indication: STENT PLACEMENT
     Route: 048
  11. METOPROLOL TARTRATE [Concomitant]
     Indication: HYPERTENSION
     Route: 048
  12. ENALAPRIL MALEATE [Concomitant]
     Indication: HYPERTENSION
     Route: 048
  13. PAROXETINE HCL [Concomitant]
     Indication: ABDOMINAL PAIN UPPER
     Route: 048
  14. PAROXETINE HCL [Concomitant]
     Indication: DEPRESSION
  15. PRAVASTATIN [Concomitant]
     Indication: BLOOD CHOLESTEROL
     Route: 048
  16. MOTILIUM [Concomitant]
     Indication: PANCREATITIS
     Dosage: JENSEN/SELIG MFR
     Route: 048

REACTIONS (12)
  - ARTHROPOD BITE [None]
  - BLOOD GLUCOSE FLUCTUATION [None]
  - CHEST DISCOMFORT [None]
  - CHEST PAIN [None]
  - DIVERTICULITIS [None]
  - DYSPNOEA [None]
  - FLUSHING [None]
  - HYPOAESTHESIA [None]
  - PANCREATITIS [None]
  - PARAESTHESIA [None]
  - PROSTATITIS [None]
  - PRURITUS [None]
